FAERS Safety Report 24646926 (Version 1)
Quarter: 2024Q4

REPORT INFORMATION
  Report Type: Other
  Country: JP (occurrence: JP)
  Receive Date: 20241121
  Receipt Date: 20241121
  Transmission Date: 20250114
  Serious: Yes (Other)
  Sender: ADAPTIS PHARMA INDIA
  Company Number: JP-Adaptis Pharma Private Limited-2165582

PATIENT
  Age: 33 Year
  Sex: Male

DRUGS (2)
  1. LEVETIRACETAM [Suspect]
     Active Substance: LEVETIRACETAM
     Indication: Epilepsy
  2. ROCURONIUM [Interacting]
     Active Substance: ROCURONIUM BROMIDE

REACTIONS (1)
  - Drug interaction [Unknown]
